FAERS Safety Report 18014039 (Version 1)
Quarter: 2020Q3

REPORT INFORMATION
  Report Type: Spontaneous
  Country: US (occurrence: US)
  Receive Date: 20200712
  Receipt Date: 20200712
  Transmission Date: 20201103
  Serious: No
  Sender: FDA-Public Use
  Company Number: None

PATIENT
  Age: 69 Year
  Sex: Female
  Weight: 81 kg

DRUGS (8)
  1. FLONASE [Concomitant]
     Active Substance: FLUTICASONE PROPIONATE
  2. AMLODIPINE [Concomitant]
     Active Substance: AMLODIPINE BESYLATE
  3. PRAVASTATIN. [Concomitant]
     Active Substance: PRAVASTATIN
  4. ASPIRIN. [Concomitant]
     Active Substance: ASPIRIN
  5. EZETIMIBE. [Concomitant]
     Active Substance: EZETIMIBE
  6. BAYER MULTI VITAMIN [Concomitant]
  7. COZAAR [Suspect]
     Active Substance: LOSARTAN POTASSIUM
     Indication: HYPERTENSION
     Route: 048
     Dates: start: 20200202, end: 20200205
  8. TOPROL XL [Concomitant]
     Active Substance: METOPROLOL SUCCINATE

REACTIONS (4)
  - Treatment failure [None]
  - Epistaxis [None]
  - Drug ineffective [None]
  - Heart rate increased [None]

NARRATIVE: CASE EVENT DATE: 20191010
